FAERS Safety Report 21304200 (Version 1)
Quarter: 2022Q3

REPORT INFORMATION
  Report Type: Spontaneous
  Country: US (occurrence: None)
  Receive Date: 20220907
  Receipt Date: 20220907
  Transmission Date: 20221026
  Serious: No
  Sender: FDA-Public Use
  Company Number: US-ARIS GLOBAL-202107-1153

PATIENT
  Sex: Female

DRUGS (4)
  1. OXERVATE [Suspect]
     Active Substance: CENEGERMIN-BKBJ
     Indication: Neurotrophic keratopathy
     Route: 047
     Dates: start: 20210708
  2. NOVOLOG [Concomitant]
     Active Substance: INSULIN ASPART
     Dosage: 100/ML CARTRIDGE
  3. LANTUS [Concomitant]
     Active Substance: INSULIN GLARGINE
     Dosage: 100/ML VIAL
  4. BACITRACIN W/POLYMYXIN [Concomitant]

REACTIONS (3)
  - Accidental overdose [Unknown]
  - Product dose omission issue [Unknown]
  - Illness [Unknown]
